FAERS Safety Report 5081609-1 (Version None)
Quarter: 2006Q3

REPORT INFORMATION
  Report Type: 
  Country: None (occurrence: None)
  Receive Date: 20060811
  Receipt Date: 20060807
  Transmission Date: 20061208
  Serious: Yes (Other)
  Sender: FDA-Public Use
  Company Number: 2006-04353

PATIENT
  Age: 26 Year
  Sex: Male

DRUGS (2)
  1. DICLOFENAC POTASSIUM [Suspect]
     Indication: NEPHROCALCINOSIS
     Dosage: 75 MG Q30 MIN X 12 TOTAL, INTRAMUSCULAR
     Route: 030
     Dates: start: 20060101, end: 20060101
  2. DICLOFENAC POTASSIUM [Suspect]
     Indication: RENAL PAIN
     Dosage: 75 MG Q30 MIN X 12 TOTAL, INTRAMUSCULAR
     Route: 030
     Dates: start: 20060101, end: 20060101

REACTIONS (3)
  - ACCIDENTAL OVERDOSE [None]
  - BONE MARROW NECROSIS [None]
  - INCORRECT DOSE ADMINISTERED [None]
